FAERS Safety Report 8236089-1 (Version None)
Quarter: 2012Q1

REPORT INFORMATION
  Report Type: 
  Country: None (occurrence: None)
  Receive Date: 20120327
  Receipt Date: 20120316
  Transmission Date: 20120608
  Serious: Yes (Hospitalization, Other)
  Sender: FDA-Public Use
  Company Number: US-BIOGENIDEC-2011BI048410

PATIENT
  Age: 61 Year
  Sex: Female

DRUGS (1)
  1. TYSABRI [Suspect]
     Indication: MULTIPLE SCLEROSIS
     Route: 042
     Dates: start: 20070201

REACTIONS (7)
  - PNEUMONIA VIRAL [None]
  - DIARRHOEA [None]
  - MUSCLE TWITCHING [None]
  - CONVULSION [None]
  - VOMITING [None]
  - TYMPANIC MEMBRANE PERFORATION [None]
  - ABDOMINAL HERNIA [None]
